FAERS Safety Report 19752491 (Version 3)
Quarter: 2021Q4

REPORT INFORMATION
  Report Type: Spontaneous
  Country: CA (occurrence: CA)
  Receive Date: 20210826
  Receipt Date: 20211201
  Transmission Date: 20220303
  Serious: Yes (Hospitalization, Other)
  Sender: FDA-Public Use
  Company Number: CA-PFIZER INC-202101057786

PATIENT
  Age: 32 Year
  Sex: Female
  Weight: 77.098 kg

DRUGS (1)
  1. PANTOPRAZOLE [Suspect]
     Active Substance: PANTOPRAZOLE
     Indication: Gastrooesophageal reflux disease
     Dosage: 40 MG, 1X/DAY
     Dates: start: 20210301, end: 20210315

REACTIONS (24)
  - Renal failure [Not Recovered/Not Resolved]
  - Blood creatinine increased [Recovering/Resolving]
  - Glomerular filtration rate decreased [Unknown]
  - Anaemia [Unknown]
  - Urinary tract infection [Unknown]
  - Feeling abnormal [Unknown]
  - Vomiting [Unknown]
  - Eating disorder [Unknown]
  - Weight decreased [Unknown]
  - Urine abnormality [Unknown]
  - Micturition frequency decreased [Unknown]
  - Dyspnoea [Unknown]
  - Acute kidney injury [Unknown]
  - Tubulointerstitial nephritis [Unknown]
  - Drug hypersensitivity [Unknown]
  - Emotional distress [Unknown]
  - Pain [Unknown]
  - Gastrooesophageal reflux disease [Unknown]
  - Anxiety [Unknown]
  - Depression [Unknown]
  - Hypokalaemia [Unknown]
  - Constipation [Unknown]
  - Fatigue [Unknown]
  - Metabolic acidosis [Unknown]

NARRATIVE: CASE EVENT DATE: 20210310
